FAERS Safety Report 24112065 (Version 1)
Quarter: 2024Q3

REPORT INFORMATION
  Report Type: Report from Study
  Country: CO (occurrence: CO)
  Receive Date: 20240719
  Receipt Date: 20240719
  Transmission Date: 20241017
  Serious: Yes (Death, Hospitalization, Other)
  Sender: ABBVIE
  Company Number: CO-ABBVIE-5740227

PATIENT
  Sex: Male
  Weight: 55 kg

DRUGS (1)
  1. VENCLEXTA [Suspect]
     Active Substance: VENETOCLAX
     Indication: Acute myeloid leukaemia
     Dosage: FORM STRENGTH- 100 MILLIGRAM
     Route: 048
     Dates: start: 20230825, end: 20240522

REACTIONS (6)
  - Death [Fatal]
  - Depressed mood [Not Recovered/Not Resolved]
  - Blast cell count increased [Unknown]
  - Hospitalisation [Not Recovered/Not Resolved]
  - Asthenia [Not Recovered/Not Resolved]
  - Bronchospasm [Unknown]

NARRATIVE: CASE EVENT DATE: 20240101
